FAERS Safety Report 4854756-4 (Version None)
Quarter: 2005Q4

REPORT INFORMATION
  Report Type: 
  Country: None (occurrence: None)
  Receive Date: 20051215
  Receipt Date: 20051205
  Transmission Date: 20060501
  Serious: Yes (Hospitalization)
  Sender: FDA-Public Use
  Company Number: FR-GLAXOSMITHKLINE-B0403313A

PATIENT
  Age: 85 Year
  Sex: Male

DRUGS (3)
  1. ONDANSETRON [Suspect]
     Route: 065
  2. ARANESP [Suspect]
     Route: 058
     Dates: start: 20051024, end: 20051024
  3. ALIMTA [Suspect]
     Dosage: 870MG PER DAY
     Route: 042
     Dates: start: 20050930, end: 20051024

REACTIONS (3)
  - DERMATITIS BULLOUS [None]
  - EPIDERMOLYSIS [None]
  - ERYTHEMA [None]
